FAERS Safety Report 8678684 (Version 3)
Quarter: 2013Q3

REPORT INFORMATION
  Report Type: Spontaneous
  Country: GB (occurrence: GB)
  Receive Date: 20120723
  Receipt Date: 20130923
  Transmission Date: 20140515
  Serious: Yes (Death, Hospitalization)
  Sender: FDA-Public Use
  Company Number: PHHY2012GB062124

PATIENT
  Sex: 0

DRUGS (1)
  1. CO-AMOXICLAV [Suspect]
     Indication: CHOLECYSTITIS
     Route: 048
     Dates: start: 20120615, end: 20120622

REACTIONS (4)
  - Myocardial ischaemia [Fatal]
  - Cardiac arrest [Fatal]
  - Hepatic failure [Fatal]
  - Jaundice cholestatic [Not Recovered/Not Resolved]
